FAERS Safety Report 24662099 (Version 2)
Quarter: 2025Q1

REPORT INFORMATION
  Report Type: Spontaneous
  Country: JP (occurrence: JP)
  Receive Date: 20241125
  Receipt Date: 20250228
  Transmission Date: 20250408
  Serious: Yes (Death, Hospitalization, Other)
  Sender: SANOFI AVENTIS
  Company Number: JP-SAKK-2024SA341257AA

PATIENT
  Age: 78 Year
  Sex: Female
  Weight: 45.6 kg

DRUGS (18)
  1. KEVZARA [Suspect]
     Active Substance: SARILUMAB
     Indication: Rheumatoid arthritis
     Dosage: 150 MG, QOW
     Route: 058
     Dates: start: 20230110, end: 2023
  2. KEVZARA [Suspect]
     Active Substance: SARILUMAB
     Dosage: 150 MG, QOW
     Route: 058
     Dates: start: 2023, end: 2023
  3. KEVZARA [Suspect]
     Active Substance: SARILUMAB
     Dosage: 150 MG, QOW
     Route: 058
     Dates: start: 20230928, end: 202402
  4. KEVZARA [Suspect]
     Active Substance: SARILUMAB
     Indication: Rheumatoid arthritis
     Dosage: 200 MG, QOW
     Route: 058
     Dates: start: 202402, end: 202405
  5. KEVZARA [Suspect]
     Active Substance: SARILUMAB
     Dosage: 200 MG, QOW
     Route: 058
     Dates: start: 20240607, end: 20241101
  6. PREDNISOLONE [Suspect]
     Active Substance: PREDNISOLONE
     Indication: Rheumatoid arthritis
     Dosage: 14 MG, QD
     Route: 048
     Dates: end: 2013
  7. PREDNISOLONE [Suspect]
     Active Substance: PREDNISOLONE
     Indication: Taste disorder
     Dosage: 10 MG, QD
     Route: 048
     Dates: start: 2013, end: 2014
  8. PREDNISOLONE [Suspect]
     Active Substance: PREDNISOLONE
     Indication: Stomatitis
     Dosage: 12.5 MG, QD
     Route: 048
     Dates: start: 2014, end: 2014
  9. PREDNISOLONE [Suspect]
     Active Substance: PREDNISOLONE
     Indication: Mesenteric panniculitis
     Dosage: 9 MG, QD
     Route: 048
     Dates: start: 2014, end: 2016
  10. PREDNISOLONE [Suspect]
     Active Substance: PREDNISOLONE
     Dosage: 10 MG, QD
     Route: 048
     Dates: start: 2016, end: 2021
  11. PREDNISOLONE [Suspect]
     Active Substance: PREDNISOLONE
     Dosage: 6 MG, QD
     Route: 048
     Dates: start: 2021, end: 2022
  12. PREDNISOLONE [Suspect]
     Active Substance: PREDNISOLONE
     Dosage: 20 MG, QD
     Route: 048
     Dates: start: 2022
  13. PREDNISOLONE [Suspect]
     Active Substance: PREDNISOLONE
     Dosage: 10 MG, QD
     Route: 048
     Dates: end: 20241115
  14. ACETAMINOPHEN [Concomitant]
     Active Substance: ACETAMINOPHEN
     Indication: Product used for unknown indication
     Route: 048
     Dates: end: 202309
  15. ACETAMINOPHEN [Concomitant]
     Active Substance: ACETAMINOPHEN
     Route: 048
     Dates: start: 2023, end: 2024
  16. TRAMADOL HYDROCHLORIDE [Concomitant]
     Active Substance: TRAMADOL HYDROCHLORIDE
     Indication: Product used for unknown indication
     Route: 065
     Dates: end: 202309
  17. TRAMADOL HYDROCHLORIDE [Concomitant]
     Active Substance: TRAMADOL HYDROCHLORIDE
     Route: 065
     Dates: start: 2023
  18. LOXOPROFEN SODIUM [Concomitant]
     Active Substance: LOXOPROFEN SODIUM
     Indication: Product used for unknown indication
     Route: 048
     Dates: end: 2024

REACTIONS (15)
  - Rectal ulcer haemorrhage [Fatal]
  - Melaena [Fatal]
  - Abdominal pain [Fatal]
  - Vomiting [Fatal]
  - Anaemia [Fatal]
  - Septic shock [Fatal]
  - Anuria [Fatal]
  - Altered state of consciousness [Fatal]
  - Urinary tract infection [Fatal]
  - Abdominal pain lower [Fatal]
  - Pyuria [Fatal]
  - Skin ulcer [Unknown]
  - Iron deficiency anaemia [Recovering/Resolving]
  - Arthritis [Recovering/Resolving]
  - Chronic gastritis [Unknown]

NARRATIVE: CASE EVENT DATE: 20240201
